FAERS Safety Report 16617251 (Version 7)
Quarter: 2023Q4

REPORT INFORMATION
  Report Type: Report from Study
  Country: AT (occurrence: AT)
  Receive Date: 20190723
  Receipt Date: 20231009
  Transmission Date: 20240110
  Serious: Yes (Hospitalization, Other)
  Sender: FDA-Public Use
  Company Number: AT-ROCHE-2257895

PATIENT
  Age: 82 Year
  Sex: Female

DRUGS (27)
  1. LETROZOLE [Suspect]
     Active Substance: LETROZOLE
     Indication: HER2 positive breast cancer
     Dosage: 2.5 MILLIGRAM, QD (O.D. ONCE DAILY)
     Route: 048
     Dates: start: 20181121
  2. TRASTUZUMAB [Suspect]
     Active Substance: TRASTUZUMAB
     Indication: Breast cancer metastatic
     Dosage: UNK
     Route: 065
  3. TRASTUZUMAB [Suspect]
     Active Substance: TRASTUZUMAB
     Dosage: 288.2 MILLIGRAM (4 WEEK)/ START DATE:28-NOV-2018
     Route: 042
     Dates: end: 20181128
  4. TRASTUZUMAB [Suspect]
     Active Substance: TRASTUZUMAB
     Dosage: 288.2 MILLIGRAM (4 WEEK)/ START DATE:19-DEC-2018
     Route: 042
  5. TRASTUZUMAB [Suspect]
     Active Substance: TRASTUZUMAB
     Dosage: 288.2MG,MOST RECENT DOSE PRIOR AE:19/DEC/2018
     Route: 042
     Dates: start: 20181128
  6. TRASTUZUMAB [Suspect]
     Active Substance: TRASTUZUMAB
     Dosage: 288.2 MG,MOST RECENT DOSE PRIOR AE:19/DEC/2018
     Route: 042
     Dates: start: 20181219
  7. ONTRUZANT [Suspect]
     Active Substance: TRASTUZUMAB-DTTB
     Indication: HER2 positive breast cancer
     Dosage: 1 DF, MONTHLY (4 WEEK)/START DATE:28-NOV-2018
     Route: 042
  8. ONTRUZANT [Suspect]
     Active Substance: TRASTUZUMAB-DTTB
     Dosage: 288.2 MILLIGRAM, 4XW/ START DATE:28-NOV-2018
     Route: 058
  9. XGEVA [Suspect]
     Active Substance: DENOSUMAB
     Indication: Breast cancer metastatic
     Dosage: 120 MILLIGRAM,Q28D/START DATE:06-NOV-2018
     Route: 058
     Dates: start: 20181106
  10. XGEVA [Suspect]
     Active Substance: DENOSUMAB
     Dosage: 120 MG,Q28D,MOST RECENT DOSE PRIOR AE JAN/2021
     Route: 058
     Dates: start: 20181106
  11. Adamon [Concomitant]
     Dosage: UNK,~ONGOING = CHECKED
     Route: 065
     Dates: start: 20201015
  12. ASCORBIC ACID\CALCIUM PHOSPHATE\CHOLECALCIFEROL\CITRIC ACID MONOHYDRAT [Concomitant]
     Active Substance: ASCORBIC ACID\CALCIUM PHOSPHATE\CHOLECALCIFEROL\CITRIC ACID MONOHYDRATE
     Dosage: UNK
     Route: 065
     Dates: start: 20181015
  13. ASCORBIC ACID\CALCIUM PHOSPHATE\CHOLECALCIFEROL\CITRIC ACID MONOHYDRAT [Concomitant]
     Active Substance: ASCORBIC ACID\CALCIUM PHOSPHATE\CHOLECALCIFEROL\CITRIC ACID MONOHYDRATE
     Dosage: UNK,ONGOING = CHECKED
     Route: 065
     Dates: start: 20201015
  14. CANDESARTAN CILEXETIL AND HYDROCHLOROTHIAZIDE [Concomitant]
     Active Substance: CANDESARTAN CILEXETIL\HYDROCHLOROTHIAZIDE
     Dosage: UNK
     Route: 065
  15. CALMOLAN [Concomitant]
     Dosage: UNK,ONGOING = CHECKED
     Route: 065
  16. VITAMINS WITH MINERALS [Concomitant]
     Active Substance: MINERALS\VITAMINS
     Dosage: UNK,ONGOING = CHECKED
     Route: 065
  17. CANDESARTAN [Concomitant]
     Active Substance: CANDESARTAN
     Dosage: UNK,~ONGOING = CHECKED
     Route: 065
     Dates: start: 20201015
  18. RILMENIDINE [Concomitant]
     Active Substance: RILMENIDINE
     Dosage: UNK,~ONGOING = CHECKED
     Route: 065
  19. MACUSAN PLUS [Concomitant]
     Dosage: UNK, ONGOING = CHECKED
     Route: 065
  20. MIRTAZAPINE [Concomitant]
     Active Substance: MIRTAZAPINE
     Dosage: ONGOING = CHECKED
     Route: 065
     Dates: start: 20201015
  21. NEBIVOLOL HYDROCHLORIDE [Concomitant]
     Active Substance: NEBIVOLOL HYDROCHLORIDE
     Dosage: UNK
     Route: 065
  22. PANTOPRAZOLE SODIUM [Concomitant]
     Active Substance: PANTOPRAZOLE SODIUM
     Dosage: UNK, ONGOING = CHECKED
     Route: 065
  23. ACETAMINOPHEN [Concomitant]
     Active Substance: ACETAMINOPHEN
     Dosage: START DATE: 19-DEC-2018
     Route: 065
     Dates: start: 20181219, end: 20181219
  24. PREGABALIN [Concomitant]
     Active Substance: PREGABALIN
     Dosage: ONGOING = CHECKED
     Route: 065
     Dates: start: 20201015
  25. SIMVASTATIN [Concomitant]
     Active Substance: SIMVASTATIN
     Dosage: UNK,~ONGOING = CHECKED
     Route: 065
  26. TRAMADOL [Concomitant]
     Active Substance: TRAMADOL\TRAMADOL HYDROCHLORIDE
     Dosage: START DATE: 15-OCT-2020,ONGOING = CHECKED
     Route: 065
     Dates: start: 20201015
  27. RANITIDINE HYDROCHLORIDE [Concomitant]
     Active Substance: RANITIDINE HYDROCHLORIDE
     Dosage: UNK,ONGOING = CHECKED
     Route: 065

REACTIONS (2)
  - Infusion related reaction [Recovered/Resolved]
  - Osteonecrosis of jaw [Recovered/Resolved]

NARRATIVE: CASE EVENT DATE: 20181128
